FAERS Safety Report 7731178-X (Version None)
Quarter: 2011Q3

REPORT INFORMATION
  Report Type: 
  Country: None (occurrence: None)
  Receive Date: 20110906
  Receipt Date: 20110829
  Transmission Date: 20111222
  Serious: Yes (Other)
  Sender: FDA-Public Use
  Company Number: US-US-EMD SERONO, INC.-7077629

PATIENT
  Sex: Female

DRUGS (4)
  1. LEXAPRO [Concomitant]
     Indication: ANXIETY
  2. REBIF [Suspect]
     Indication: MULTIPLE SCLEROSIS
     Route: 058
     Dates: start: 20060101
  3. BACLOFEN [Concomitant]
     Indication: MUSCLE SPASTICITY
     Route: 048
  4. ZANAFLEX [Concomitant]
     Indication: MUSCLE SPASTICITY

REACTIONS (4)
  - SPINAL COLUMN STENOSIS [None]
  - JOINT STIFFNESS [None]
  - FATIGUE [None]
  - MUSCULOSKELETAL STIFFNESS [None]
